FAERS Safety Report 16719300 (Version 1)
Quarter: 2019Q3

REPORT INFORMATION
  Report Type: Report from Study
  Country: US (occurrence: US)
  Receive Date: 20190820
  Receipt Date: 20190820
  Transmission Date: 20191005
  Serious: Yes (Hospitalization, Other)
  Sender: FDA-Public Use
  Company Number: US-JNJFOC-20190822157

PATIENT
  Sex: Male

DRUGS (1)
  1. IMBRUVICA [Suspect]
     Active Substance: IBRUTINIB
     Indication: MANTLE CELL LYMPHOMA
     Dosage: 420 MG, QD
     Route: 048
     Dates: start: 20180813

REACTIONS (6)
  - Fluid retention [Unknown]
  - Platelet count decreased [Unknown]
  - Peripheral swelling [Unknown]
  - Weight increased [Unknown]
  - Pneumonia aspiration [Unknown]
  - Asthenia [Unknown]
